FAERS Safety Report 9350040 (Version 1)
Quarter: 2013Q2

REPORT INFORMATION
  Report Type: Report from Study
  Country: US (occurrence: US)
  Receive Date: 20130615
  Receipt Date: 20130615
  Transmission Date: 20140414
  Serious: Yes (Hospitalization)
  Sender: FDA-Public Use
  Company Number: US-B.I. PHARMACEUTICALS,INC./RIDGEFIELD-2013-RU-00590BP

PATIENT
  Age: 88 Year
  Sex: Male
  Weight: 77.3 kg

DRUGS (5)
  1. DABIGATRAN [Suspect]
     Indication: CARDIOVASCULAR EVENT PROPHYLAXIS
     Dates: start: 20130228
  2. DABIGATRAN [Suspect]
     Indication: ATRIAL FIBRILLATION
  3. BLOOD TRANSFUSION [Concomitant]
     Indication: ANAEMIA
     Dosage: 1 U
     Route: 042
     Dates: start: 20130522, end: 20130522
  4. DIGOXIN [Concomitant]
     Indication: ATRIAL FIBRILLATION
     Dosage: 0.125 MCG
     Route: 042
  5. DILTIAZEM [Concomitant]
     Indication: ATRIAL FIBRILLATION
     Dosage: 180 MG
     Route: 042

REACTIONS (3)
  - Tachycardia [Unknown]
  - Lethargy [Unknown]
  - Anaemia [Unknown]
